FAERS Safety Report 6737006-3 (Version None)
Quarter: 2010Q2

REPORT INFORMATION
  Report Type: 
  Country: None (occurrence: None)
  Receive Date: 20100523
  Receipt Date: 20100216
  Transmission Date: 20101027
  Serious: No
  Sender: FDA-Public Use
  Company Number: US-ALLERGAN-1001961US

PATIENT
  Age: 62 Year
  Sex: Female

DRUGS (1)
  1. COMBIGAN [Suspect]
     Indication: OPEN ANGLE GLAUCOMA
     Dosage: UNK

REACTIONS (4)
  - ERYTHEMA OF EYELID [None]
  - EYE PAIN [None]
  - EYELID OEDEMA [None]
  - EYELIDS PRURITUS [None]
